FAERS Safety Report 4414493-7 (Version None)
Quarter: 2004Q3

REPORT INFORMATION
  Report Type: 
  Country: None (occurrence: None)
  Receive Date: 20040702
  Receipt Date: 20040116
  Transmission Date: 20050211
  Serious: Yes (Other)
  Sender: FDA-Public Use
  Company Number: 356063

PATIENT
  Age: 29 Year
  Sex: Male

DRUGS (4)
  1. KLONOPIN [Suspect]
     Indication: DRUG USE FOR UNKNOWN INDICATION
     Dosage: 2 MG DAILY ORAL
     Route: 048
     Dates: start: 20040108, end: 20040108
  2. BAYER EXTRA STRENGTH BACK AND BODY PAIN (ASPIRIN/CAFFEINE) [Suspect]
     Indication: DRUG USE FOR UNKNOWN INDICATION
     Dosage: 2MG DAILY ORAL
     Route: 048
     Dates: start: 20040108, end: 20040108
  3. DIPHENHYDRAMINE HCL [Suspect]
     Indication: DRUG USE FOR UNKNOWN INDICATION
     Dosage: 200 MG DAILY ORAL
     Route: 048
     Dates: start: 20040108, end: 20040108
  4. TYLENOL EXTRA-STRENGTH (ACETAMINOHEN) [Suspect]
     Indication: DRUG USE FOR UNKNOWN INDICATION
     Dosage: 2000 MG DAILY ORAL
     Route: 048
     Dates: start: 20040108, end: 20040108

REACTIONS (2)
  - ABDOMINAL PAIN UPPER [None]
  - SOMNOLENCE [None]
